FAERS Safety Report 7115682-3 (Version None)
Quarter: 2010Q4

REPORT INFORMATION
  Report Type: 
  Country: None (occurrence: None)
  Receive Date: 20101122
  Receipt Date: 20101116
  Transmission Date: 20110411
  Serious: Yes (Hospitalization)
  Sender: FDA-Public Use
  Company Number: FR-SANOFI-AVENTIS-2010SA069313

PATIENT
  Age: 34 Year
  Sex: Male

DRUGS (6)
  1. TOPALGIC [Suspect]
     Indication: ERYSIPELAS
     Route: 048
     Dates: start: 20100829, end: 20100908
  2. LOVENOX [Suspect]
     Indication: ERYSIPELAS
     Route: 058
     Dates: start: 20100829, end: 20100908
  3. PENICILLIN G SODIUM [Suspect]
     Indication: ERYSIPELAS
     Dosage: DOSE:20 MEGAUNIT(S)
     Route: 042
     Dates: start: 20100829, end: 20100901
  4. DAFALGAN [Suspect]
     Indication: ERYSIPELAS
     Route: 048
     Dates: start: 20100829, end: 20100908
  5. TAZOCILLINE [Suspect]
     Indication: JOINT ABSCESS
     Route: 042
     Dates: start: 20100901, end: 20100903
  6. GENTAMICIN [Suspect]
     Indication: JOINT ABSCESS
     Route: 042
     Dates: start: 20100901, end: 20100903

REACTIONS (10)
  - ACUTE FEBRILE NEUTROPHILIC DERMATOSIS [None]
  - COBB SYNDROME [None]
  - CYTOMEGALOVIRUS TEST POSITIVE [None]
  - EOSINOPHILIA [None]
  - EPSTEIN-BARR VIRUS INFECTION [None]
  - EYELID OEDEMA [None]
  - JOINT ABSCESS [None]
  - OEDEMA [None]
  - OEDEMA PERIPHERAL [None]
  - RASH MACULO-PAPULAR [None]
